FAERS Safety Report 6715535-6 (Version None)
Quarter: 2010Q2

REPORT INFORMATION
  Report Type: 
  Country: None (occurrence: None)
  Receive Date: 20100507
  Receipt Date: 20100426
  Transmission Date: 20101027
  Serious: Yes (Other)
  Sender: FDA-Public Use
  Company Number: BR-PFIZER INC-2010023720

PATIENT
  Age: 51 Year
  Sex: Female
  Weight: 64 kg

DRUGS (9)
  1. CHAMPIX [Suspect]
     Indication: TOBACCO USER
     Dosage: UNK
     Route: 048
     Dates: start: 20100118
  2. ACTIVELLE [Concomitant]
     Indication: HORMONE REPLACEMENT THERAPY
     Dosage: UNK
  3. DIMENHYDRINATE [Concomitant]
     Dosage: UNK
  4. OMEPRAZOLE [Concomitant]
     Dosage: UNK
  5. CELEBRA [Concomitant]
     Dosage: UNK
  6. PARACETAMOL [Concomitant]
     Dosage: UNK
  7. GABAPENTIN [Concomitant]
     Dosage: UNK
  8. LEXAPRO [Concomitant]
     Dosage: UNK
  9. RIVOTRIL [Concomitant]
     Dosage: UNK

REACTIONS (3)
  - AMNESIA [None]
  - CARPAL TUNNEL SYNDROME [None]
  - CONFUSIONAL STATE [None]
